FAERS Safety Report 10459675 (Version 1)
Quarter: 2014Q3

REPORT INFORMATION
  Report Type: Spontaneous
  Country: SE (occurrence: SE)
  Receive Date: 20140917
  Receipt Date: 20140917
  Transmission Date: 20150326
  Serious: Yes (Other)
  Sender: FDA-Public Use
  Company Number: SE-BRISTOL-MYERS SQUIBB COMPANY-21366091

PATIENT
  Age: 39 Year
  Sex: Female

DRUGS (12)
  1. ORENCIA [Suspect]
     Active Substance: ABATACEPT
     Indication: RHEUMATOID ARTHRITIS
     Route: 042
     Dates: start: 20140430, end: 20140625
  2. FINACEA [Concomitant]
     Active Substance: AZELAIC ACID
  3. PREDNISOLONE. [Concomitant]
     Active Substance: PREDNISOLONE
  4. CIPROFLOXACIN. [Concomitant]
     Active Substance: CIPROFLOXACIN
  5. DIFFERIN [Concomitant]
     Active Substance: ADAPALENE
  6. MIRENA [Concomitant]
     Active Substance: LEVONORGESTREL
  7. ORUDIS [Concomitant]
     Active Substance: KETOPROFEN
  8. KALCIPOS-D [Concomitant]
     Active Substance: CALCIUM CARBONATE\CHOLECALCIFEROL
  9. CLINDAMYCIN [Concomitant]
     Active Substance: CLINDAMYCIN\CLINDAMYCIN PHOSPHATE
  10. ALVEDON [Concomitant]
     Active Substance: ACETAMINOPHEN
  11. SALAZOPYRIN [Concomitant]
     Active Substance: SULFASALAZINE
  12. PROPYLENE GLYCOL [Concomitant]
     Active Substance: PROPYLENE GLYCOL

REACTIONS (2)
  - Liver function test abnormal [Not Recovered/Not Resolved]
  - Biliary cirrhosis [Unknown]

NARRATIVE: CASE EVENT DATE: 20140623
